FAERS Safety Report 4429873-3 (Version None)
Quarter: 2004Q3

REPORT INFORMATION
  Report Type: 
  Country: None (occurrence: None)
  Receive Date: 20040816
  Receipt Date: 20040803
  Transmission Date: 20050211
  Serious: Yes (Other)
  Sender: FDA-Public Use
  Company Number: 2004053037

PATIENT
  Age: 39 Year
  Sex: Female

DRUGS (3)
  1. SERTRALINE HYDROCHLORIDE [Suspect]
     Indication: DEPRESSION
     Dosage: 100 MG (100 MG, 1 IN 1 D), ORAL
     Route: 048
     Dates: start: 20040528, end: 20040529
  2. PROPRANOLOL [Concomitant]
  3. SUMATRIPTAN (SUMATRIPTAN) [Concomitant]

REACTIONS (3)
  - DISSOCIATION [None]
  - FEELING ABNORMAL [None]
  - HALLUCINATION, AUDITORY [None]
